FAERS Safety Report 12902655 (Version 1)
Quarter: 2016Q4

REPORT INFORMATION
  Report Type: Spontaneous
  Country: US (occurrence: US)
  Receive Date: 20161102
  Receipt Date: 20161102
  Transmission Date: 20170207
  Serious: No
  Sender: FDA-Public Use
  Company Number: US-GLAXOSMITHKLINE-US2016160865

PATIENT
  Age: 70 Year
  Sex: Female

DRUGS (6)
  1. VENTOLIN HFA [Concomitant]
     Active Substance: ALBUTEROL SULFATE
  2. ASPIRIN. [Concomitant]
     Active Substance: ASPIRIN
  3. GABAPENTIN. [Concomitant]
     Active Substance: GABAPENTIN
  4. VERAPAMIL [Concomitant]
     Active Substance: VERAPAMIL HYDROCHLORIDE
  5. ADVAIR DISKUS [Suspect]
     Active Substance: FLUTICASONE PROPIONATE\SALMETEROL XINAFOATE
     Indication: SARCOIDOSIS
     Dosage: 1 PUFF(S), BID
     Route: 055
     Dates: start: 201608
  6. HYDRALAZINE [Concomitant]
     Active Substance: HYDRALAZINE HYDROCHLORIDE

REACTIONS (3)
  - Drug ineffective [Recovering/Resolving]
  - Breath sounds abnormal [Recovering/Resolving]
  - Off label use [Unknown]

NARRATIVE: CASE EVENT DATE: 201608
